FAERS Safety Report 10935169 (Version 1)
Quarter: 2015Q1

REPORT INFORMATION
  Report Type: Spontaneous
  Country: US (occurrence: US)
  Receive Date: 20150320
  Receipt Date: 20150320
  Transmission Date: 20150721
  Serious: Yes (Death)
  Sender: FDA-Public Use
  Company Number: US-TEVA-548775USA

PATIENT
  Age: 38 Year
  Sex: Female
  Weight: 99 kg

DRUGS (5)
  1. FLUOXETINE [Suspect]
     Active Substance: FLUOXETINE\FLUOXETINE HYDROCHLORIDE
     Route: 065
  2. ASENAPINE [Suspect]
     Active Substance: ASENAPINE
     Route: 065
  3. HYDROCODONE [Suspect]
     Active Substance: HYDROCODONE
     Route: 065
  4. QUETIAPINE FUMARATE. [Suspect]
     Active Substance: QUETIAPINE FUMARATE
     Route: 065
  5. SEPROXETINE [Suspect]
     Active Substance: SEPROXETINE
     Route: 065

REACTIONS (3)
  - Suicidal ideation [None]
  - Toxicity to various agents [Fatal]
  - Alcohol use [None]
